FAERS Safety Report 6102770-3 (Version None)
Quarter: 2009Q1

REPORT INFORMATION
  Report Type: 
  Country: None (occurrence: None)
  Receive Date: 20090304
  Receipt Date: 20090302
  Transmission Date: 20090719
  Serious: No
  Sender: FDA-Public Use
  Company Number: US-B.I. PHARMACEUTICALS,INC./RIDGEFIELD-2009-BP-02528BP

PATIENT
  Age: 62 Year
  Sex: Female

DRUGS (13)
  1. SPIRIVA [Suspect]
     Indication: CHRONIC OBSTRUCTIVE PULMONARY DISEASE
     Dosage: 18MCG
     Route: 055
     Dates: start: 20090227
  2. OXYGEN [Concomitant]
     Indication: CHRONIC OBSTRUCTIVE PULMONARY DISEASE
  3. PROPRANOLOL [Concomitant]
     Indication: HYPERTENSION
  4. SOLMA [Concomitant]
     Indication: MUSCLE RELAXANT THERAPY
  5. CLONAZEPAM [Concomitant]
     Indication: ANXIETY
  6. ZETIA [Concomitant]
     Indication: BLOOD CHOLESTEROL INCREASED
  7. ADVAIR DISKUS 100/50 [Concomitant]
     Indication: CHRONIC OBSTRUCTIVE PULMONARY DISEASE
  8. LORATADINE [Concomitant]
     Indication: HYPERSENSITIVITY
  9. NASONEX [Concomitant]
     Indication: HYPERSENSITIVITY
  10. NITROSTAT [Concomitant]
     Indication: CHEST PAIN
  11. TRAZODONE HCL [Concomitant]
     Indication: INSOMNIA
  12. AMBIEN [Concomitant]
     Indication: INSOMNIA
  13. OMEPRAZOLE [Concomitant]
     Indication: GASTROOESOPHAGEAL REFLUX DISEASE

REACTIONS (1)
  - DRUG INEFFECTIVE [None]
